FAERS Safety Report 10248782 (Version 2)
Quarter: 2014Q2

REPORT INFORMATION
  Report Type: Spontaneous
  Country: JP (occurrence: JP)
  Receive Date: 20140620
  Receipt Date: 20140620
  Transmission Date: 20141212
  Serious: Yes (Other)
  Sender: FDA-Public Use
  Company Number: JP-ROCHE-1362537

PATIENT
  Age: 65 Year
  Sex: Male
  Weight: 53 kg

DRUGS (7)
  1. PEGASYS [Suspect]
     Indication: CHRONIC HEPATITIS C
     Route: 058
     Dates: start: 20131224
  2. COPEGUS [Suspect]
     Indication: CHRONIC HEPATITIS C
     Route: 048
     Dates: start: 20131224, end: 20140209
  3. COPEGUS [Suspect]
     Route: 048
     Dates: start: 20140210
  4. SIMEPREVIR [Suspect]
     Indication: CHRONIC HEPATITIS C
     Route: 048
     Dates: start: 20131224, end: 20140317
  5. ADALAT CR [Concomitant]
     Indication: HYPERTENSION
     Route: 048
     Dates: start: 20131224
  6. LANIRAPID [Concomitant]
     Indication: ARRHYTHMIA
     Route: 048
  7. WARFARIN [Concomitant]
     Indication: ARRHYTHMIA
     Route: 048

REACTIONS (7)
  - Rash [Recovered/Resolved]
  - White blood cell count decreased [Recovering/Resolving]
  - Generalised erythema [Recovered/Resolved]
  - Pruritus [Recovering/Resolving]
  - Rash [Unknown]
  - Platelet count decreased [Not Recovered/Not Resolved]
  - Haemoglobin decreased [Not Recovered/Not Resolved]
